FAERS Safety Report 23391479 (Version 3)
Quarter: 2024Q1

REPORT INFORMATION
  Report Type: Spontaneous
  Country: US (occurrence: US)
  Receive Date: 20240111
  Receipt Date: 20240131
  Transmission Date: 20240409
  Serious: No
  Sender: FDA-Public Use
  Company Number: US-SA-SAC20240108001034

PATIENT
  Age: 53 Year
  Sex: Male
  Weight: 128.37 kg

DRUGS (2)
  1. DUPIXENT [Suspect]
     Active Substance: DUPILUMAB
     Indication: Asthma
     Dosage: 400 MG, 1X
     Route: 058
  2. DUPIXENT [Suspect]
     Active Substance: DUPILUMAB
     Indication: Eosinophilia
     Dosage: 200 MG, QOW
     Route: 058
     Dates: start: 20230424

REACTIONS (9)
  - Dyspnoea [Unknown]
  - Eye pain [Unknown]
  - Abdominal pain upper [Unknown]
  - Sluggishness [Unknown]
  - Asthma [Unknown]
  - Eosinophilia [Unknown]
  - Condition aggravated [Unknown]
  - Arthralgia [Recovered/Resolved]
  - Product use in unapproved indication [Unknown]

NARRATIVE: CASE EVENT DATE: 20230501
